FAERS Safety Report 20109987 (Version 1)
Quarter: 2021Q4

REPORT INFORMATION
  Report Type: Spontaneous
  Country: US (occurrence: None)
  Receive Date: 20211124
  Receipt Date: 20211124
  Transmission Date: 20220304
  Serious: Yes (Death)
  Sender: FDA-Public Use
  Company Number: None

PATIENT
  Age: 74 Year
  Sex: Female
  Weight: 65.74 kg

DRUGS (11)
  1. PIQRAY [Suspect]
     Active Substance: ALPELISIB
     Indication: Breast cancer
     Dosage: FREQUENCY : EVERY OTHER DAY;?
     Route: 048
     Dates: start: 20201104, end: 20211030
  2. TYLENOL WITH CODEINE [Concomitant]
     Active Substance: ACETAMINOPHEN\CODEINE PHOSPHATE
  3. ALBUTEROL SULFATE [Concomitant]
     Active Substance: ALBUTEROL SULFATE
  4. NORVASC [Concomitant]
     Active Substance: AMLODIPINE BESYLATE
  5. VITAMIN D3 [Concomitant]
     Active Substance: CHOLECALCIFEROL
  6. AROMASIN [Concomitant]
     Active Substance: EXEMESTANE
  7. NORCO [Concomitant]
     Active Substance: ACETAMINOPHEN\HYDROCODONE BITARTRATE
  8. LATANOPROST [Concomitant]
     Active Substance: LATANOPROST
  9. LOSARTAN [Concomitant]
     Active Substance: LOSARTAN
  10. PREDNISONE [Concomitant]
     Active Substance: PREDNISONE
  11. TIMOLOL [Concomitant]
     Active Substance: TIMOLOL

REACTIONS (1)
  - Death [None]

NARRATIVE: CASE EVENT DATE: 20211030
